FAERS Safety Report 8591759-0 (Version None)
Quarter: 2012Q3

REPORT INFORMATION
  Report Type: 
  Country: None (occurrence: None)
  Receive Date: 20120814
  Receipt Date: 20120809
  Transmission Date: 20120928
  Serious: Yes (Hospitalization)
  Sender: FDA-Public Use
  Company Number: PHHY2012IT069455

PATIENT
  Sex: Male

DRUGS (6)
  1. VALPROATE SODIUM [Concomitant]
     Dosage: 300 MG, UNK
  2. AMLODIPINE BESYLATE [Concomitant]
  3. TEGRETOL [Suspect]
     Indication: HEAD INJURY
     Dosage: 2 DF DAILY
     Route: 048
     Dates: start: 20101011, end: 20120703
  4. VALPROATE SODIUM [Concomitant]
     Dosage: 500 MG, UNK
  5. CAPTOPRIL [Concomitant]
  6. ASPIRIN [Concomitant]

REACTIONS (4)
  - HYPONATRAEMIA [None]
  - CONFUSIONAL STATE [None]
  - PSYCHOMOTOR RETARDATION [None]
  - INAPPROPRIATE ANTIDIURETIC HORMONE SECRETION [None]
